FAERS Safety Report 7729419-8 (Version None)
Quarter: 2011Q3

REPORT INFORMATION
  Report Type: 
  Country: None (occurrence: None)
  Receive Date: 20110819
  Receipt Date: 20110811
  Transmission Date: 20111222
  Serious: Yes (Other)
  Sender: FDA-Public Use
  Company Number: 2011028858

PATIENT
  Sex: Male
  Weight: 95.2554 kg

DRUGS (33)
  1. HYDROCODONE BITARTRATE + ACETAMINOPHEN [Concomitant]
  2. PLAVIX [Concomitant]
  3. SYNTHROID [Concomitant]
  4. FUROSEMIDE [Concomitant]
  5. GABAPENTIN [Concomitant]
  6. HIZENTRA [Suspect]
  7. LANTUS [Concomitant]
  8. BUPROPION XL (BUPROPION) [Concomitant]
  9. NAPROXEN [Concomitant]
  10. OMNARIS (CICLESONIDE) [Concomitant]
  11. CO-QLO (UBIDECARENONE) [Concomitant]
  12. DIOVAN [Concomitant]
  13. ZANTAC [Concomitant]
  14. AMBIEN CR [Concomitant]
  15. SIMVASTATIN [Concomitant]
  16. LEXAPRO [Concomitant]
  17. FEXOFENADINE HCL [Concomitant]
  18. OMEGA-3 (OMEGA-3 FATTY ACIDS) [Concomitant]
  19. FINASTERIDE [Concomitant]
  20. PRIMIDONE [Concomitant]
  21. FISH OIL (FISH OIL) [Concomitant]
  22. HIZENTRA [Suspect]
     Indication: IMMUNODEFICIENCY COMMON VARIABLE
     Dosage: SEE IMAGE
     Route: 058
     Dates: start: 20110501
  23. HIZENTRA [Suspect]
     Indication: IMMUNODEFICIENCY
     Dosage: SEE IMAGE
     Route: 058
     Dates: start: 20110501
  24. HIZENTRA [Suspect]
     Indication: IMMUNODEFICIENCY COMMON VARIABLE
     Dosage: SEE IMAGE
     Route: 058
     Dates: start: 20101201
  25. HIZENTRA [Suspect]
     Indication: IMMUNODEFICIENCY
     Dosage: SEE IMAGE
     Route: 058
     Dates: start: 20101201
  26. HIZENTRA [Suspect]
     Indication: IMMUNODEFICIENCY COMMON VARIABLE
     Dosage: SEE IMAGE
     Route: 058
     Dates: start: 20101229
  27. HIZENTRA [Suspect]
     Indication: IMMUNODEFICIENCY
     Dosage: SEE IMAGE
     Route: 058
     Dates: start: 20101229
  28. ALBUTEROL [Concomitant]
  29. SINGULAIR [Concomitant]
  30. CASODEX [Concomitant]
  31. CLARITIN [Concomitant]
  32. SYMBICORT [Concomitant]
  33. MUCINEX [Concomitant]

REACTIONS (2)
  - RESPIRATORY TRACT INFECTION [None]
  - EAR INFECTION [None]
